FAERS Safety Report 11996250 (Version 3)
Quarter: 2016Q2

REPORT INFORMATION
  Report Type: Spontaneous
  Country: NO (occurrence: NO)
  Receive Date: 20160203
  Receipt Date: 20160406
  Transmission Date: 20160815
  Serious: Yes (Life-Threatening)
  Sender: FDA-Public Use
  Company Number: NO-TEVA-628919ACC

PATIENT
  Age: 58 Year
  Sex: Male
  Weight: 86.8 kg

DRUGS (7)
  1. FOLIC ACID. [Concomitant]
     Active Substance: FOLIC ACID
  2. METHOTREXATE [Suspect]
     Active Substance: METHOTREXATE
     Indication: RHEUMATOID ARTHRITIS
     Dates: start: 201402, end: 201412
  3. METHOTREXATE [Suspect]
     Active Substance: METHOTREXATE
     Dates: start: 201412, end: 201512
  4. SIMVASTATIN. [Concomitant]
     Active Substance: SIMVASTATIN
     Dosage: 40 MILLIGRAM DAILY;
  5. CIMZIA [Suspect]
     Active Substance: CERTOLIZUMAB PEGOL
     Indication: RHEUMATOID ARTHRITIS
     Route: 051
     Dates: start: 201412, end: 201512
  6. PREDNISOLON [Suspect]
     Active Substance: PREDNISOLONE
     Indication: RHEUMATOID ARTHRITIS
     Dosage: 5 MILLIGRAM DAILY;
     Dates: start: 201402
  7. LOSARTAN. [Concomitant]
     Active Substance: LOSARTAN
     Dosage: 50 MILLIGRAM DAILY;

REACTIONS (2)
  - Adenocarcinoma of colon [Recovering/Resolving]
  - Large intestine polyp [Recovering/Resolving]

NARRATIVE: CASE EVENT DATE: 20151217
